FAERS Safety Report 8557009-6 (Version None)
Quarter: 2012Q3

REPORT INFORMATION
  Report Type: 
  Country: None (occurrence: None)
  Receive Date: 20120801
  Receipt Date: 20120723
  Transmission Date: 20120928
  Serious: Yes (Other)
  Sender: FDA-Public Use
  Company Number: US-JNJFOC-20120403071

PATIENT
  Age: 69 Year
  Sex: Female
  Weight: 68.04 kg

DRUGS (3)
  1. METHOTREXATE [Concomitant]
     Indication: RHEUMATOID ARTHRITIS
     Route: 048
     Dates: start: 19970101, end: 20110901
  2. ALENDRONATE SODIUM [Concomitant]
     Indication: OSTEOPOROSIS
     Route: 048
     Dates: start: 20060101
  3. REMICADE [Suspect]
     Indication: RHEUMATOID ARTHRITIS
     Dosage: APPROXIMATE TOTAL OF 50 INFUSIONS ADMINSTERED
     Route: 042
     Dates: start: 20030918, end: 20110901

REACTIONS (1)
  - NON-SMALL CELL LUNG CANCER [None]
